FAERS Safety Report 9757473 (Version 1)
Quarter: 2013Q4

REPORT INFORMATION
  Report Type: Spontaneous
  Country: US (occurrence: US)
  Receive Date: 20131215
  Receipt Date: 20131215
  Transmission Date: 20140711
  Serious: No
  Sender: FDA-Public Use
  Company Number: US-009507513-1312USA005367

PATIENT
  Sex: Female

DRUGS (1)
  1. IMPLANON [Suspect]
     Dosage: ROUTE SPECIFIED AS LEFT ARM
     Route: 059
     Dates: start: 20121010

REACTIONS (3)
  - Device dislocation [Unknown]
  - Menstruation irregular [Unknown]
  - Amenorrhoea [Unknown]
